FAERS Safety Report 13201816 (Version 1)
Quarter: 2017Q1

REPORT INFORMATION
  Report Type: Spontaneous
  Country: GB (occurrence: GB)
  Receive Date: 20170209
  Receipt Date: 20170209
  Transmission Date: 20170428
  Serious: Yes (Life-Threatening, Hospitalization, Disabling)
  Sender: FDA-Public Use
  Company Number: GB-ACCORD-047962

PATIENT
  Age: 65 Year
  Sex: Male
  Weight: 71.1 kg

DRUGS (19)
  1. OMEPRAZOLE. [Concomitant]
     Active Substance: OMEPRAZOLE
  2. PARACETAMOL [Suspect]
     Active Substance: ACETAMINOPHEN
     Indication: PAIN
     Route: 048
     Dates: start: 20161217, end: 20161228
  3. ATORVASTATIN [Concomitant]
     Active Substance: ATORVASTATIN
  4. RAMIPRIL. [Suspect]
     Active Substance: RAMIPRIL
     Indication: HYPERTENSION
     Route: 048
     Dates: end: 20161228
  5. IBUPROFEN. [Suspect]
     Active Substance: IBUPROFEN
     Indication: PAIN
     Route: 048
     Dates: start: 20161217, end: 20161228
  6. AMIKACIN [Suspect]
     Active Substance: AMIKACIN
     Indication: SEPSIS
     Route: 042
     Dates: start: 20161227, end: 20161227
  7. FLUCLOXACILLIN [Suspect]
     Active Substance: FLUCLOXACILLIN
     Indication: WOUND INFECTION STAPHYLOCOCCAL
     Route: 042
     Dates: start: 20161218, end: 20161228
  8. NOVOMIX [Concomitant]
     Active Substance: INSULIN ASPART
  9. BRINZOLAMIDE [Concomitant]
     Active Substance: BRINZOLAMIDE
  10. DALTEPARIN [Concomitant]
     Active Substance: DALTEPARIN
  11. METFORMIN [Concomitant]
     Active Substance: METFORMIN HYDROCHLORIDE
  12. PREGABALIN. [Concomitant]
     Active Substance: PREGABALIN
  13. CODEINE PHOSPHATE/PARACETAMOL [Concomitant]
     Dates: end: 201612
  14. FOLIC ACID. [Concomitant]
     Active Substance: FOLIC ACID
  15. TAMSULOSIN/TAMSULOSIN HYDROCHLORIDE [Concomitant]
  16. TRIMETHOPRIM/TRIMETHOPRIM LACTATE/TRIMETHOPRIM SULFATE [Concomitant]
  17. CANAGLIFLOZIN [Suspect]
     Active Substance: CANAGLIFLOZIN
     Indication: TYPE 2 DIABETES MELLITUS
     Route: 048
     Dates: end: 20161228
  18. AMITRIPTYLINE [Concomitant]
     Active Substance: AMITRIPTYLINE
  19. HEPARIN [Concomitant]
     Active Substance: HEPARIN SODIUM

REACTIONS (4)
  - Acute kidney injury [Recovered/Resolved with Sequelae]
  - Ketoacidosis [Recovered/Resolved]
  - Metabolic acidosis [Unknown]
  - Pyroglutamate increased [Recovered/Resolved]

NARRATIVE: CASE EVENT DATE: 20161228
